FAERS Safety Report 8354912-7 (Version None)
Quarter: 2012Q2

REPORT INFORMATION
  Report Type: 
  Country: None (occurrence: None)
  Receive Date: 20120511
  Receipt Date: 20120508
  Transmission Date: 20120825
  Serious: Yes (Hospitalization, Other)
  Sender: FDA-Public Use
  Company Number: ES-PFIZER INC-2012111896

PATIENT
  Age: 80 Year
  Sex: Male

DRUGS (2)
  1. UROLOSIN [Concomitant]
     Indication: PROSTATISM
     Dosage: 0.4 MG, 1X/DAY
     Route: 048
  2. ATORVASTATIN CALCIUM [Suspect]
     Indication: HYPERCHOLESTEROLAEMIA
     Dosage: 10 MG, 1X/DAY
     Route: 048
     Dates: start: 20070401, end: 20070701

REACTIONS (3)
  - DRUG-INDUCED LIVER INJURY [None]
  - RENAL FAILURE [None]
  - JAUNDICE [None]
